FAERS Safety Report 15653801 (Version 1)
Quarter: 2018Q4

REPORT INFORMATION
  Report Type: Spontaneous
  Country: US (occurrence: US)
  Receive Date: 20181124
  Receipt Date: 20181124
  Transmission Date: 20190205
  Serious: No
  Sender: FDA-Public Use
  Company Number: US-JNJFOC-20181044421

PATIENT
  Sex: Male
  Weight: 108.86 kg

DRUGS (4)
  1. FLONASE [Concomitant]
     Active Substance: FLUTICASONE PROPIONATE
     Indication: HYPERSENSITIVITY
     Route: 065
  2. DURAGESIC [Suspect]
     Active Substance: FENTANYL
     Indication: SPINAL COLUMN STENOSIS
     Route: 062
     Dates: start: 201711, end: 201806
  3. ZYRTEC [Concomitant]
     Active Substance: CETIRIZINE HYDROCHLORIDE
     Indication: HYPERSENSITIVITY
     Route: 065
  4. DURAGESIC [Suspect]
     Active Substance: FENTANYL
     Indication: SPINAL COLUMN STENOSIS
     Route: 062
     Dates: start: 201806

REACTIONS (3)
  - Inappropriate schedule of product administration [Unknown]
  - Somnolence [Unknown]
  - Rash [Not Recovered/Not Resolved]

NARRATIVE: CASE EVENT DATE: 2018
